FAERS Safety Report 5224669-7 (Version None)
Quarter: 2007Q1

REPORT INFORMATION
  Report Type: 
  Country: None (occurrence: None)
  Receive Date: 20070131
  Receipt Date: 20070125
  Transmission Date: 20070707
  Serious: Yes (Other)
  Sender: FDA-Public Use
  Company Number: FR-SP-2007-00234

PATIENT
  Age: 56 Year
  Sex: Female

DRUGS (1)
  1. IMMUCYST [Suspect]
     Indication: CARCINOMA IN SITU
     Route: 043

REACTIONS (3)
  - CELLULITIS [None]
  - MYOSITIS [None]
  - PELVIC PAIN [None]
